FAERS Safety Report 5319012-9 (Version None)
Quarter: 2007Q2

REPORT INFORMATION
  Report Type: 
  Country: None (occurrence: None)
  Receive Date: 20070503
  Receipt Date: 20070503
  Transmission Date: 20071010
  Serious: Yes (Other)
  Sender: FDA-Public Use
  Company Number: None

PATIENT
  Age: 57 Year
  Sex: Male
  Weight: 99.7913 kg

DRUGS (2)
  1. LEVAQUIN [Suspect]
     Indication: PROSTATE INFECTION
     Dosage: 1 TABLET  DAILY
     Dates: start: 20060301, end: 20060303
  2. LEVAQUIN [Suspect]
     Indication: VIRAL INFECTION
     Dosage: 1 TABLET    DAILY
     Dates: start: 20030201, end: 20030203

REACTIONS (1)
  - PAIN IN EXTREMITY [None]
